FAERS Safety Report 12498175 (Version 1)
Quarter: 2016Q2

REPORT INFORMATION
  Report Type: Report from Study
  Country: US (occurrence: US)
  Receive Date: 20160627
  Receipt Date: 20160627
  Transmission Date: 20160815
  Serious: No
  Sender: FDA-Public Use
  Company Number: US-009507513-1606USA001314

PATIENT
  Age: 34 Year
  Sex: Female
  Weight: 76.64 kg

DRUGS (1)
  1. IMPLANON [Suspect]
     Active Substance: ETONOGESTREL
     Dosage: UNK
     Route: 059
     Dates: start: 20151203, end: 20160527

REACTIONS (2)
  - Mood swings [Unknown]
  - Medical device removal [Unknown]

NARRATIVE: CASE EVENT DATE: 20160527
